FAERS Safety Report 8943720 (Version 1)
Quarter: 2012Q4

REPORT INFORMATION
  Report Type: 
  Country: CH (occurrence: CH)
  Receive Date: 20121204
  Receipt Date: 20121204
  Transmission Date: 20130627
  Serious: Yes (Disabling)
  Sender: FDA-Public Use
  Company Number: PHHY2012CH110298

PATIENT
  Age: 54 Year
  Sex: Female
  Weight: 61 kg

DRUGS (5)
  1. IBANDRONATE SODIUM [Suspect]
     Indication: OSTEOPOROSIS
     Dosage: 3 mg, UNK
     Route: 040
     Dates: start: 20120924, end: 20120924
  2. MIACALCIC [Suspect]
     Indication: OSTEOPOROSIS
     Dosage: 33.3 ug, UNK
     Route: 045
     Dates: start: 20120924, end: 20121004
  3. OLMETEC [Suspect]
     Indication: ESSENTIAL HYPERTENSION
     Dosage: 10 mg ((0.5 x 20 mg per day)
     Route: 048
     Dates: start: 2011, end: 20121004
  4. EUTHYROX [Concomitant]
     Indication: HYPOTHYROIDISM
     Dosage: 75 ug, QD
     Route: 048
     Dates: start: 2010
  5. VITAMIN D3 [Concomitant]
     Indication: VITAMIN D DEFICIENCY
     Dosage: 20 drp per day
     Route: 048
     Dates: start: 20121010

REACTIONS (2)
  - Renal tubular disorder [Recovered/Resolved]
  - Hypotension [Recovered/Resolved]
